FAERS Safety Report 24772868 (Version 2)
Quarter: 2024Q4

REPORT INFORMATION
  Report Type: Spontaneous
  Country: CN (occurrence: CN)
  Receive Date: 20241225
  Receipt Date: 20241225
  Transmission Date: 20250115
  Serious: Yes (Hospitalization)
  Sender: JIANGSU HENGRUI PHARMACEUTICALS CO., LTD.
  Company Number: CN-JIANGSU HENGRUI PHARMACEUTICALS CO., LTD.-H2024243640

PATIENT
  Age: 38 Year
  Weight: 54 kg

DRUGS (3)
  1. CYCLOPHOSPHAMIDE [Suspect]
     Active Substance: CYCLOPHOSPHAMIDE
     Indication: Lymphoma
     Dosage: 1.2 G, D5
  2. BORTEZOMIB [Suspect]
     Active Substance: BORTEZOMIB
     Indication: Lymphoma
     Dosage: 2 MG, D1, 8
  3. DOXORUBICIN [Suspect]
     Active Substance: DOXORUBICIN
     Indication: Lymphoma
     Dosage: 16 MG, D1, 4

REACTIONS (2)
  - White blood cell count decreased [Recovering/Resolving]
  - Chest discomfort [Recovering/Resolving]
